FAERS Safety Report 7620006-9 (Version None)
Quarter: 2011Q3

REPORT INFORMATION
  Report Type: 
  Country: None (occurrence: None)
  Receive Date: 20110719
  Receipt Date: 20110714
  Transmission Date: 20111222
  Serious: No
  Sender: FDA-Public Use
  Company Number: US-PFIZER INC-2011160715

PATIENT
  Sex: Male

DRUGS (2)
  1. GABAPENTIN [Suspect]
     Dosage: 100 MG, 3X/DAY
  2. GABAPENTIN [Suspect]
     Dosage: 600 MG,QHS

REACTIONS (2)
  - BLISTER [None]
  - DRUG INEFFECTIVE [None]
